FAERS Safety Report 10021841 (Version 2)
Quarter: 2014Q2

REPORT INFORMATION
  Report Type: Spontaneous
  Country: US (occurrence: US)
  Receive Date: 20140319
  Receipt Date: 20140410
  Transmission Date: 20141212
  Serious: No
  Sender: FDA-Public Use
  Company Number: US-009507513-1403USA008237

PATIENT
  Sex: Male

DRUGS (3)
  1. PEGINTRON [Suspect]
     Indication: HEPATITIS C
     Dosage: 150 MG/ 0.5 CC ONCE A WEEK; REDIPEN
     Route: 058
     Dates: start: 20140227
  2. REBETOL [Suspect]
     Indication: HEPATITIS C
     Dosage: 3 AM AND PM, TWICE A DAY
     Route: 048
     Dates: start: 20140227
  3. SOVALDI [Concomitant]
     Dosage: 1 (UNITS NOT REPORTED), QD
     Route: 048

REACTIONS (3)
  - Injection site pruritus [Unknown]
  - Injection site erythema [Unknown]
  - Muscle spasms [Unknown]
